FAERS Safety Report 15739688 (Version 1)
Quarter: 2018Q4

REPORT INFORMATION
  Report Type: Report from Study
  Country: US (occurrence: US)
  Receive Date: 20181219
  Receipt Date: 20181219
  Transmission Date: 20190205
  Serious: Yes (Other)
  Sender: FDA-Public Use
  Company Number: US-ALEXION PHARMACEUTICALS INC.-A201816694

PATIENT
  Sex: Male

DRUGS (1)
  1. SOLIRIS [Suspect]
     Active Substance: ECULIZUMAB
     Indication: PRODUCT USED FOR UNKNOWN INDICATION
     Route: 065

REACTIONS (17)
  - Hyperlipidaemia [Unknown]
  - Vitamin B12 deficiency [Unknown]
  - Intrinsic factor deficiency [Unknown]
  - Nausea [Unknown]
  - Blood lactate dehydrogenase increased [Unknown]
  - Vitamin D deficiency [Unknown]
  - Iron deficiency anaemia [Unknown]
  - Coagulation test abnormal [Unknown]
  - Abdominal pain upper [Unknown]
  - Haemorrhage [Unknown]
  - Flatulence [Unknown]
  - Asthenia [Unknown]
  - Abdominal distension [Unknown]
  - Haemoglobinuria [Unknown]
  - Pancytopenia [Unknown]
  - Haemolytic anaemia [Unknown]
  - Eructation [Unknown]
